FAERS Safety Report 20859175 (Version 2)
Quarter: 2022Q2

REPORT INFORMATION
  Report Type: Report from Study
  Country: US (occurrence: US)
  Receive Date: 20220523
  Receipt Date: 20220526
  Transmission Date: 20220721
  Serious: No
  Sender: FDA-Public Use
  Company Number: US-NOVARTISTESTPH-NVSC2022US117236

PATIENT
  Age: 81 Year
  Sex: Female
  Weight: 68.95 kg

DRUGS (1)
  1. ENTRESTO [Suspect]
     Active Substance: SACUBITRIL\VALSARTAN
     Indication: Psoriatic arthropathy
     Dosage: 1 DOSAGE FORM, BID, (24/26 MG)
     Route: 048
     Dates: start: 202110

REACTIONS (2)
  - Fall [Recovered/Resolved]
  - Product use in unapproved indication [Unknown]

NARRATIVE: CASE EVENT DATE: 20220401
